FAERS Safety Report 4860086-7 (Version None)
Quarter: 2005Q4

REPORT INFORMATION
  Report Type: 
  Country: None (occurrence: None)
  Receive Date: 20051215
  Receipt Date: 20051201
  Transmission Date: 20060501
  Serious: Yes (Other)
  Sender: FDA-Public Use
  Company Number: GB-2005-024295

PATIENT
  Age: 35 Year
  Sex: Female

DRUGS (3)
  1. BETAFERON(INTERFERON BETA - 1B) INJECTION, 250UG [Suspect]
     Indication: MULTIPLE SCLEROSIS
     Dosage: SUBCUTANEOUS; HALF DOSE; FULL DOSE
     Route: 058
     Dates: start: 20021001, end: 20050301
  2. BETAFERON(INTERFERON BETA - 1B) INJECTION, 250UG [Suspect]
     Indication: MULTIPLE SCLEROSIS
     Dosage: SUBCUTANEOUS; HALF DOSE; FULL DOSE
     Route: 058
     Dates: start: 20050301, end: 20050501
  3. BETAFERON(INTERFERON BETA - 1B) INJECTION, 250UG [Suspect]
     Indication: MULTIPLE SCLEROSIS
     Dosage: SUBCUTANEOUS; HALF DOSE; FULL DOSE
     Route: 058
     Dates: start: 20050501

REACTIONS (4)
  - CERVICAL DYSPLASIA [None]
  - LYMPHOCYTE COUNT DECREASED [None]
  - NEUTROPHIL COUNT DECREASED [None]
  - WHITE BLOOD CELL COUNT DECREASED [None]
